FAERS Safety Report 7835158-5 (Version None)
Quarter: 2011Q4

REPORT INFORMATION
  Report Type: 
  Country: None (occurrence: None)
  Receive Date: 20111024
  Receipt Date: 20111014
  Transmission Date: 20120403
  Serious: Yes (Other)
  Sender: FDA-Public Use
  Company Number: PHHY2011BR04738

PATIENT
  Sex: Female

DRUGS (9)
  1. EXELON [Suspect]
     Indication: DEMENTIA ALZHEIMER'S TYPE
     Dosage: 1 DF (1 PATCH DAILY)
     Route: 062
     Dates: start: 20101001
  2. METFORMIN HCL [Suspect]
     Dosage: 850 MG, UNK
  3. GLYBURIDE [Suspect]
     Dosage: 25 MG, UNK
  4. ENALAPRIL MALEATE [Suspect]
     Dosage: 20 MG, UNK
  5. NOQUITOL [Suspect]
  6. HYDROCHLOROTHIAZIDE [Suspect]
     Dosage: 25 MG, UNK
  7. EXIBE [Suspect]
     Dosage: 10 MG, UNK
  8. PAROXETINE HCL [Suspect]
     Dosage: 10 MG, UNK
  9. PURAN [Suspect]
     Dosage: 150 MG, UNK

REACTIONS (3)
  - BREAST MASS [None]
  - BREAST CANCER [None]
  - WRONG TECHNIQUE IN DRUG USAGE PROCESS [None]
